FAERS Safety Report 5610429-1 (Version None)
Quarter: 2008Q1

REPORT INFORMATION
  Report Type: 
  Country: None (occurrence: None)
  Receive Date: 20080128
  Receipt Date: 20080116
  Transmission Date: 20080703
  Serious: Yes (Hospitalization)
  Sender: FDA-Public Use
  Company Number: 230558J08USA

PATIENT
  Age: 47 Year
  Sex: Male

DRUGS (2)
  1. REBIF [Suspect]
     Indication: MULTIPLE SCLEROSIS
     Dosage: 44 MCG, 3 IN 1 WEEKS, SUBCUTANEOUS
     Route: 058
     Dates: start: 20060208
  2. BACLOFEN [Suspect]
     Dosage: NOT REPORTED

REACTIONS (5)
  - CHEST DISCOMFORT [None]
  - CONVULSION [None]
  - ILL-DEFINED DISORDER [None]
  - OVERDOSE [None]
  - PARALYSIS [None]
